FAERS Safety Report 24531625 (Version 1)
Quarter: 2024Q4

REPORT INFORMATION
  Report Type: Report from Study
  Country: US (occurrence: US)
  Receive Date: 20241022
  Receipt Date: 20241022
  Transmission Date: 20250115
  Serious: No
  Sender: ROCHE
  Company Number: US-ROCHE-2894422

PATIENT
  Age: 26 Year
  Sex: Female
  Weight: 38.6 kg

DRUGS (8)
  1. PULMOZYME [Suspect]
     Active Substance: DORNASE ALFA
     Indication: Congenital anomaly
     Dosage: NEBULIZE THE CONTENTS OF 1 VIAL(S) TWICE A DAY
     Route: 065
     Dates: start: 201905
  2. PULMOZYME [Suspect]
     Active Substance: DORNASE ALFA
     Indication: Breath holding
     Dosage: 2.5 MG/ 2.5 ML TWICE DAILY GIVEN WITH A HIGH-FLOW NEBULIZER
     Route: 065
  3. PULMOZYME [Suspect]
     Active Substance: DORNASE ALFA
     Indication: Congenital anomaly
  4. PULMOZYME [Suspect]
     Active Substance: DORNASE ALFA
     Indication: Respiration abnormal
  5. PULMOZYME [Suspect]
     Active Substance: DORNASE ALFA
     Indication: Blindness
  6. PULMOZYME [Suspect]
     Active Substance: DORNASE ALFA
     Indication: Chronic obstructive pulmonary disease
  7. FLOVENT HFA [Concomitant]
     Active Substance: FLUTICASONE PROPIONATE
     Dosage: RESCUE INHALER, 2 PUFFS TWICE DAILY
     Dates: start: 201905
  8. XOPENEX [Concomitant]
     Active Substance: LEVALBUTEROL HYDROCHLORIDE
     Dosage: 0.31 MG/ 3 ML
     Dates: start: 201905

REACTIONS (5)
  - Scarlet fever [Unknown]
  - Off label use [Unknown]
  - Cough [Unknown]
  - Renal disorder [Unknown]
  - Dehydration [Unknown]
